FAERS Safety Report 4531052-6 (Version None)
Quarter: 2004Q4

REPORT INFORMATION
  Report Type: 
  Country: None (occurrence: None)
  Receive Date: 20041215
  Receipt Date: 20041202
  Transmission Date: 20050328
  Serious: Yes (Hospitalization)
  Sender: FDA-Public Use
  Company Number: 2004108899

PATIENT
  Age: 69 Year
  Sex: Female

DRUGS (6)
  1. TOLTERODINE 9TOLTERODINE) [Suspect]
     Indication: HYPERTONIC BLADDER
     Dosage: QD, ORAL
     Route: 048
     Dates: start: 20031205, end: 20040217
  2. LOVASWTATIN (LOVASTATIN) [Concomitant]
  3. OMEPRAZOLE [Concomitant]
  4. SALBUTAMOL (SALBUTAMOL) [Concomitant]
  5. IPRATROPIUM BROMIDE [Concomitant]
  6. ASPIRIN [Concomitant]

REACTIONS (5)
  - APHTHOUS STOMATITIS [None]
  - LARYNGEAL OEDEMA [None]
  - ORAL MUCOSAL BLISTERING [None]
  - THERMAL BURN [None]
  - VOCAL CORD PARALYSIS [None]
